FAERS Safety Report 5039314-3 (Version None)
Quarter: 2006Q2

REPORT INFORMATION
  Report Type: 
  Country: None (occurrence: None)
  Receive Date: 20060623
  Receipt Date: 20060614
  Transmission Date: 20061013
  Serious: Yes (Death, Hospitalization)
  Sender: FDA-Public Use
  Company Number: 2006BI005929

PATIENT
  Age: 57 Year
  Sex: Female
  Weight: 53.5244 kg

DRUGS (19)
  1. AVONEX [Suspect]
     Indication: MULTIPLE SCLEROSIS
     Dosage: 30 UG; QW; IM
     Route: 030
     Dates: start: 19990101, end: 20030801
  2. AVONEX [Suspect]
     Indication: MULTIPLE SCLEROSIS
     Dosage: 30 UG; QW; IM
     Route: 030
     Dates: start: 20030801
  3. DETROL LA [Concomitant]
  4. IMIPRAMINE [Concomitant]
  5. TIZANIDINE HCL [Concomitant]
  6. PREMARIN [Concomitant]
  7. MEDROXYPROGESTERONE [Concomitant]
  8. MAXZIDE [Concomitant]
  9. ZOLOFT [Concomitant]
  10. BUSPAR [Concomitant]
  11. BACLOFEN [Concomitant]
  12. LORAZEPAM [Concomitant]
  13. ASPIRIN [Concomitant]
  14. CALCIUM GLUCONATE [Concomitant]
  15. KLOR-CON [Concomitant]
  16. DOCUSATE [Concomitant]
  17. ASCORBIC ACID [Concomitant]
  18. VITAMIN E [Concomitant]
  19. MULTI-VITAMIN [Concomitant]

REACTIONS (7)
  - COUGH DECREASED [None]
  - DELIRIUM [None]
  - KIDNEY INFECTION [None]
  - MUSCULAR WEAKNESS [None]
  - NEPHROLITHIASIS [None]
  - PNEUMONIA [None]
  - SEPSIS [None]
